FAERS Safety Report 13787931 (Version 2)
Quarter: 2017Q3

REPORT INFORMATION
  Report Type: Spontaneous
  Country: DE (occurrence: DE)
  Receive Date: 20170725
  Receipt Date: 20170727
  Transmission Date: 20171127
  Serious: Yes (Hospitalization)
  Sender: FDA-Public Use
  Company Number: DE-BIOGEN-2017BI00434533

PATIENT
  Sex: Female

DRUGS (15)
  1. ESOMEPRAZOLE [Concomitant]
     Active Substance: ESOMEPRAZOLE
     Indication: PRODUCT USED FOR UNKNOWN INDICATION
     Route: 048
  2. ESTRADIOL. [Concomitant]
     Active Substance: ESTRADIOL
     Indication: HORMONE REPLACEMENT THERAPY
     Route: 062
  3. LACTULOSE. [Concomitant]
     Active Substance: LACTULOSE
     Indication: PRODUCT USED FOR UNKNOWN INDICATION
     Route: 048
  4. PANCREAS [Concomitant]
     Indication: PRODUCT USED FOR UNKNOWN INDICATION
     Dosage: 2500
     Route: 065
  5. ZINBRYTA [Suspect]
     Active Substance: DACLIZUMAB
     Indication: RELAPSING-REMITTING MULTIPLE SCLEROSIS
     Route: 058
     Dates: start: 20170201, end: 20170302
  6. LITHIUM. [Concomitant]
     Active Substance: LITHIUM
     Indication: BIPOLAR DISORDER
     Route: 065
  7. TRIACYLGLYCEROL - LIPASE 25000 [Concomitant]
     Indication: PRODUCT USED FOR UNKNOWN INDICATION
     Route: 048
  8. CLEXANE [Concomitant]
     Active Substance: ENOXAPARIN SODIUM
     Indication: PRODUCT USED FOR UNKNOWN INDICATION
     Route: 065
  9. L-THYROXINE [Concomitant]
     Active Substance: LEVOTHYROXINE
     Indication: HYPOTHYROIDISM
     Route: 065
  10. PANTOPRAZOLE [Concomitant]
     Active Substance: PANTOPRAZOLE
     Indication: PRODUCT USED FOR UNKNOWN INDICATION
     Route: 048
  11. HYDROTALCIT [Concomitant]
     Indication: PRODUCT USED FOR UNKNOWN INDICATION
     Route: 048
  12. ALPHA LIPON ACID [Concomitant]
     Indication: PRODUCT USED FOR UNKNOWN INDICATION
     Route: 065
     Dates: start: 20161013
  13. ENOXAPARIN [Concomitant]
     Active Substance: ENOXAPARIN
     Indication: PRODUCT USED FOR UNKNOWN INDICATION
     Route: 058
  14. METAMIZOL SODIUM [Concomitant]
     Active Substance: METAMIZOL SODIUM
     Indication: PRODUCT USED FOR UNKNOWN INDICATION
     Route: 048
  15. GINGKOBIL [Concomitant]
     Indication: PRODUCT USED FOR UNKNOWN INDICATION
     Route: 065
     Dates: start: 20161013

REACTIONS (16)
  - Cataract [Unknown]
  - Vitreous floaters [Unknown]
  - Bipolar disorder [Unknown]
  - Toxicity to various agents [Unknown]
  - Cachexia [Unknown]
  - Multiple sclerosis relapse [Unknown]
  - Acute kidney injury [Recovered/Resolved]
  - Anaemia [Unknown]
  - Iritis [Unknown]
  - Cholangiocarcinoma [Not Recovered/Not Resolved]
  - Pulmonary sepsis [Recovered/Resolved]
  - Pneumonia escherichia [Recovered/Resolved]
  - Autoimmune uveitis [Unknown]
  - Hypertension [Unknown]
  - Hypernatraemia [Unknown]
  - Iris adhesions [Unknown]

NARRATIVE: CASE EVENT DATE: 2017
